FAERS Safety Report 23897805 (Version 1)
Quarter: 2024Q2

REPORT INFORMATION
  Report Type: Report from Study
  Country: CO (occurrence: None)
  Receive Date: 20240524
  Receipt Date: 20240524
  Transmission Date: 20240716
  Serious: Yes (Hospitalization)
  Sender: FDA-Public Use
  Company Number: 2024A119562

PATIENT
  Age: 28483 Day
  Sex: Male

DRUGS (2)
  1. TAGRISSO [Suspect]
     Active Substance: OSIMERTINIB
     Indication: Lung neoplasm malignant
     Route: 048
     Dates: start: 20230613
  2. TAGRISSO [Suspect]
     Active Substance: OSIMERTINIB
     Indication: Lung neoplasm malignant
     Route: 048
     Dates: start: 20230613

REACTIONS (5)
  - Cardiac disorder [Unknown]
  - Fatigue [Unknown]
  - Suffocation feeling [Unknown]
  - Back pain [Unknown]
  - Hypoxia [Unknown]

NARRATIVE: CASE EVENT DATE: 20240514
